FAERS Safety Report 13787082 (Version 1)
Quarter: 2017Q3

REPORT INFORMATION
  Report Type: Spontaneous
  Country: US (occurrence: US)
  Receive Date: 20170725
  Receipt Date: 20170725
  Transmission Date: 20171127
  Serious: No
  Sender: FDA-Public Use
  Company Number: US-GLAXOSMITHKLINE-US2017GSK114305

PATIENT
  Age: 72 Year
  Sex: Female

DRUGS (1)
  1. WELLBUTRIN XL [Suspect]
     Active Substance: BUPROPION HYDROCHLORIDE
     Indication: MOOD SWINGS
     Dosage: 150 MG, BID
     Route: 048
     Dates: start: 1995, end: 2014

REACTIONS (4)
  - Rosacea [Recovering/Resolving]
  - Erythema [Recovered/Resolved]
  - Off label use [Recovering/Resolving]
  - Pruritus [Recovered/Resolved]
